FAERS Safety Report 8230676-2 (Version None)
Quarter: 2012Q1

REPORT INFORMATION
  Report Type: 
  Country: None (occurrence: None)
  Receive Date: 20120323
  Receipt Date: 20120315
  Transmission Date: 20120608
  Serious: Yes (Hospitalization, Other)
  Sender: FDA-Public Use
  Company Number: US-ASTELLAS-2012US002884

PATIENT
  Age: 88 Year
  Sex: Male

DRUGS (3)
  1. DASATINIB [Suspect]
     Indication: NON-SMALL CELL LUNG CANCER
     Dosage: 50 MG, UID/QD
     Route: 048
     Dates: start: 20120201, end: 20120218
  2. ERLOTINIB HYDROCHLORIDE [Suspect]
     Indication: NON-SMALL CELL LUNG CANCER
     Dosage: 150 MG, UID/QD
     Route: 048
     Dates: start: 20120201, end: 20120218
  3. DASATINIB [Suspect]
     Dosage: 20 MG, UID/QD
     Route: 048
     Dates: start: 20120201, end: 20120218

REACTIONS (5)
  - DYSPNOEA [None]
  - PNEUMOTHORAX [None]
  - HAEMOGLOBIN DECREASED [None]
  - HAEMATURIA [None]
  - PLEURAL EFFUSION [None]
